FAERS Safety Report 23573328 (Version 2)
Quarter: 2024Q1

REPORT INFORMATION
  Report Type: Report from Study
  Country: CA (occurrence: CA)
  Receive Date: 20240228
  Receipt Date: 20240229
  Transmission Date: 20240410
  Serious: Yes (Hospitalization)
  Sender: FDA-Public Use
  Company Number: CA-ABBVIE-5655652

PATIENT
  Age: 78 Year
  Sex: Female

DRUGS (2)
  1. VENCLEXTA [Suspect]
     Active Substance: VENETOCLAX
     Indication: Acute myeloid leukaemia
     Dosage: STOPPED IN 2024?FREQUENCY TEXT: 10MG 2 TABLET + 50MG 1 TABLET=70MG DAILY
     Route: 048
     Dates: start: 20240108
  2. CYTARABINE [Concomitant]
     Active Substance: CYTARABINE
     Indication: Product used for unknown indication
     Dosage: LOW DOSE

REACTIONS (2)
  - Skin infection [Unknown]
  - Haematological infection [Unknown]

NARRATIVE: CASE EVENT DATE: 20240101
